FAERS Safety Report 19958515 (Version 2)
Quarter: 2021Q4

REPORT INFORMATION
  Report Type: Spontaneous
  Country: CN (occurrence: CN)
  Receive Date: 20211015
  Receipt Date: 20211019
  Transmission Date: 20220303
  Serious: Yes (Other)
  Sender: FDA-Public Use
  Company Number: CN-PFIZER INC-202101302728

PATIENT
  Age: 99 Year
  Sex: Male
  Weight: 60 kg

DRUGS (1)
  1. ZITHROMAX [Suspect]
     Active Substance: AZITHROMYCIN DIHYDRATE
     Indication: Symptomatic treatment
     Dosage: 0.5 G, 1X/DAY
     Route: 041
     Dates: start: 20210913, end: 20210915

REACTIONS (4)
  - Sinus bradycardia [Recovering/Resolving]
  - Atrioventricular block complete [Recovering/Resolving]
  - Electrocardiogram QRS complex prolonged [Recovering/Resolving]
  - Bundle branch block right [Recovering/Resolving]

NARRATIVE: CASE EVENT DATE: 20210915
